FAERS Safety Report 16614053 (Version 1)
Quarter: 2019Q3

REPORT INFORMATION
  Report Type: Spontaneous
  Country: FR (occurrence: FR)
  Receive Date: 20190723
  Receipt Date: 20190723
  Transmission Date: 20191004
  Serious: Yes (Other)
  Sender: FDA-Public Use
  Company Number: FR-PFIZER INC-2019304495

PATIENT
  Age: 50 Year
  Sex: Female

DRUGS (1)
  1. GLIBENESE [GLIPIZIDE] [Suspect]
     Active Substance: GLIPIZIDE
     Dosage: 0.5 DF, SINGLE
     Route: 048
     Dates: start: 20190611, end: 20190611

REACTIONS (3)
  - Postprandial hypoglycaemia [Recovered/Resolved]
  - Wrong patient received product [Recovered/Resolved]
  - Medication error [Recovered/Resolved]

NARRATIVE: CASE EVENT DATE: 20190611
